FAERS Safety Report 5912176-5 (Version None)
Quarter: 2008Q4

REPORT INFORMATION
  Report Type: 
  Country: None (occurrence: None)
  Receive Date: 20081003
  Receipt Date: 20081003
  Transmission Date: 20090506
  Serious: Yes (Life-Threatening)
  Sender: FDA-Public Use
  Company Number: None

PATIENT
  Age: 38 Year
  Sex: Female
  Weight: 61.2356 kg

DRUGS (1)
  1. CIPROFLOXACIN HCL [Suspect]
     Indication: SUBCUTANEOUS ABSCESS
     Dosage: 500MG BID PO, ONE DOSE
     Route: 048
     Dates: start: 20080929, end: 20080929

REACTIONS (2)
  - ANAPHYLACTIC REACTION [None]
  - EXPIRED DRUG ADMINISTERED [None]
